FAERS Safety Report 13492303 (Version 1)
Quarter: 2017Q2

REPORT INFORMATION
  Report Type: Spontaneous
  Country: US (occurrence: US)
  Receive Date: 20170427
  Receipt Date: 20170427
  Transmission Date: 20170830
  Serious: Yes (Other)
  Sender: FDA-Public Use
  Company Number: US-JNJFOC-20170426970

PATIENT
  Sex: Male
  Weight: 61 kg

DRUGS (14)
  1. IMBRUVICA [Suspect]
     Active Substance: IBRUTINIB
     Indication: WALDENSTROM^S MACROGLOBULINAEMIA
     Route: 048
     Dates: start: 20150501
  2. ATENOLOL. [Concomitant]
     Active Substance: ATENOLOL
  3. DONEPEZIL. [Concomitant]
     Active Substance: DONEPEZIL
  4. OMEPRAZOLE. [Concomitant]
     Active Substance: OMEPRAZOLE
  5. AMLODIPINE W/BENAZEPRIL [Concomitant]
     Active Substance: AMLODIPINE BESYLATE\BENAZEPRIL HYDROCHLORIDE
  6. FERROUS SULFATE. [Concomitant]
     Active Substance: FERROUS SULFATE
  7. SIMVASTATIN. [Concomitant]
     Active Substance: SIMVASTATIN
  8. TAMSULOSIN [Concomitant]
     Active Substance: TAMSULOSIN
  9. CILOSTAZOL. [Concomitant]
     Active Substance: CILOSTAZOL
  10. MAGNESIUM [Concomitant]
     Active Substance: MAGNESIUM
  11. VITAMIN B6 [Concomitant]
     Active Substance: PYRIDOXINE HYDROCHLORIDE
  12. BABY ASPIRIN [Concomitant]
     Active Substance: ASPIRIN
  13. METROGEL [Concomitant]
     Active Substance: METRONIDAZOLE
  14. MULTIVITAMINS [Concomitant]
     Active Substance: VITAMINS

REACTIONS (1)
  - Gastrointestinal haemorrhage [Unknown]
